FAERS Safety Report 18144868 (Version 1)
Quarter: 2020Q3

REPORT INFORMATION
  Report Type: Spontaneous
  Country: US (occurrence: US)
  Receive Date: 20200813
  Receipt Date: 20200813
  Transmission Date: 20201103
  Serious: Yes (Hospitalization)
  Sender: FDA-Public Use
  Company Number: None

PATIENT
  Age: 65 Year
  Sex: Male

DRUGS (4)
  1. VITAMIN C, LANTUS, THEOPHYLLINE, QVAR, ADVAIR, ALBUTEROL [Concomitant]
  2. ENBREL [Suspect]
     Active Substance: ETANERCEPT
     Indication: RHEUMATOID ARTHRITIS
     Dosage: ?          OTHER FREQUENCY:ONCE WEEKLY;?
     Route: 058
     Dates: start: 20150825
  3. VITAMIN B12, FOLIC ACID, METHOTREXATE, ATROVENT HFA, RANITIDINE [Concomitant]
  4. CALCIUM, SINGULAIR, FUROSEMIDE, AMLODIPINE, VITAMIN D, METFORMIN [Concomitant]

REACTIONS (5)
  - Therapy interrupted [None]
  - Pneumonia bacterial [None]
  - Joint swelling [None]
  - Arthralgia [None]
  - Fluid retention [None]

NARRATIVE: CASE EVENT DATE: 20200716
